FAERS Safety Report 25571626 (Version 1)
Quarter: 2025Q3

REPORT INFORMATION
  Report Type: Spontaneous
  Country: US (occurrence: None)
  Receive Date: 20250717
  Receipt Date: 20250717
  Transmission Date: 20251020
  Serious: Yes (Death, Hospitalization)
  Sender: FDA-CTU
  Company Number: None

PATIENT
  Age: 61 Year
  Sex: Male
  Weight: 72.5 kg

DRUGS (5)
  1. FLUOROURACIL [Suspect]
     Active Substance: FLUOROURACIL
  2. CAMPTOSAR [Suspect]
     Active Substance: IRINOTECAN HYDROCHLORIDE
  3. LEUCOVORIN CALCIUM [Suspect]
     Active Substance: LEUCOVORIN CALCIUM
  4. NIVOLUMAB [Suspect]
     Active Substance: NIVOLUMAB
  5. ELOXATIN [Suspect]
     Active Substance: OXALIPLATIN

REACTIONS (16)
  - Abdominal pain [None]
  - Nonspecific reaction [None]
  - Asthenia [None]
  - Nausea [None]
  - Dyspnoea [None]
  - Cough [None]
  - Oedema peripheral [None]
  - Hypotension [None]
  - Acute respiratory failure [None]
  - Metabolic acidosis [None]
  - Blood creatinine increased [None]
  - Aspartate aminotransferase increased [None]
  - Troponin increased [None]
  - Pneumonia [None]
  - Metastatic neoplasm [None]
  - Ascites [None]

NARRATIVE: CASE EVENT DATE: 20250715
